FAERS Safety Report 9157240 (Version 1)
Quarter: 2013Q1

REPORT INFORMATION
  Report Type: Spontaneous
  Country: US (occurrence: None)
  Receive Date: 20130308
  Receipt Date: 20130308
  Transmission Date: 20140127
  Serious: No
  Sender: FDA-Public Use
  Company Number: None

PATIENT
  Age: 61 Year
  Sex: Male
  Weight: 111.13 kg

DRUGS (1)
  1. LEVOFLOXACIN [Suspect]
     Indication: PNEUMONIA
     Dosage: 500 MG 1 EVERY 24 HRS  ORAL
     Route: 048
     Dates: start: 20130221, end: 20130223

REACTIONS (6)
  - Decreased appetite [None]
  - Glossodynia [None]
  - Pallor [None]
  - Restlessness [None]
  - Dizziness [None]
  - Confusional state [None]
